FAERS Safety Report 5636565-1 (Version None)
Quarter: 2008Q1

REPORT INFORMATION
  Report Type: 
  Country: None (occurrence: None)
  Receive Date: 20080219
  Receipt Date: 20080219
  Transmission Date: 20080703
  Serious: Yes (Life-Threatening)
  Sender: FDA-Public Use
  Company Number: None

PATIENT
  Age: 70 Year
  Sex: Male
  Weight: 90.7194 kg

DRUGS (1)
  1. CLONAZEPAM [Suspect]
     Indication: MUSCLE SPASMS
     Dosage: 1 TABLET DAILY PO
     Route: 048
     Dates: start: 20070205, end: 20070215

REACTIONS (1)
  - SUICIDAL IDEATION [None]
